FAERS Safety Report 11918073 (Version 1)
Quarter: 2016Q1

REPORT INFORMATION
  Report Type: Spontaneous
  Country: US (occurrence: US)
  Receive Date: 20160114
  Receipt Date: 20160114
  Transmission Date: 20160526
  Serious: Yes (Other)
  Sender: FDA-Public Use
  Company Number: US-DEP_03000_2015

PATIENT
  Sex: Male
  Weight: 91 kg

DRUGS (3)
  1. NUCYNTA [Suspect]
     Active Substance: TAPENTADOL HYDROCHLORIDE
     Indication: OFF LABEL USE
     Dosage: PRN
     Route: 048
     Dates: start: 2014, end: 201412
  2. NUCYNTA [Suspect]
     Active Substance: TAPENTADOL HYDROCHLORIDE
     Indication: PAIN
     Dosage: 400-500 MG DAILY, PRN
     Route: 048
     Dates: start: 201412
  3. NUCYNTA ER [Suspect]
     Active Substance: TAPENTADOL HYDROCHLORIDE
     Indication: PAIN
     Route: 048
     Dates: start: 201412

REACTIONS (2)
  - Overdose [Unknown]
  - Adverse event [Unknown]

NARRATIVE: CASE EVENT DATE: 2014
